FAERS Safety Report 8612582 (Version 3)
Quarter: 2012Q4

REPORT INFORMATION
  Report Type: 
  Country: JP (occurrence: JP)
  Receive Date: 20120613
  Receipt Date: 20120904
  Transmission Date: 20130627
  Serious: Yes (Other)
  Sender: FDA-Public Use
  Company Number: JP-GLAXOSMITHKLINE-B0807038A

PATIENT
  Age: 80 Year
  Sex: Female

DRUGS (10)
  1. SERETIDE (50MCG/250MCG) [Suspect]
     Indication: ASTHMA
     Dosage: 250MCG Twice per day
     Route: 055
     Dates: start: 20120322
  2. SERETIDE (50MCG/250MCG) [Suspect]
     Indication: ASTHMA
     Dosage: 250MCG Twice per day
     Route: 055
     Dates: start: 201205, end: 20120528
  3. PARIET [Concomitant]
     Indication: GASTROOESOPHAGEAL REFLUX DISEASE
     Dosage: 10MG Per day
     Route: 048
     Dates: start: 20111113
  4. SELOKEN [Concomitant]
     Indication: HYPERTENSION
     Dosage: 120MG Per day
     Route: 048
     Dates: start: 20111113
  5. TANATRIL [Concomitant]
     Indication: HYPERTENSION
     Dosage: 5MG Per day
     Route: 048
     Dates: start: 20111113
  6. WARFARIN [Concomitant]
     Indication: ATRIAL FIBRILLATION
     Dosage: 2.5MG Per day
     Route: 048
     Dates: start: 20120405
  7. SIGMART [Concomitant]
     Indication: ANGINA PECTORIS
     Dosage: 45MG Per day
     Route: 048
     Dates: start: 20111113
  8. MAGMITT [Concomitant]
     Route: 048
  9. POSTERISAN [Concomitant]
     Route: 061
  10. ISALON [Concomitant]
     Route: 048

REACTIONS (1)
  - Hallucination [Recovered/Resolved]
